FAERS Safety Report 11081706 (Version 3)
Quarter: 2015Q4

REPORT INFORMATION
  Report Type: Report from Study
  Country: IT (occurrence: IT)
  Receive Date: 20150501
  Receipt Date: 20151112
  Transmission Date: 20160304
  Serious: Yes (Hospitalization, Other)
  Sender: FDA-Public Use
  Company Number: IT-ABBVIE-14P-083-1306566-00

PATIENT
  Sex: Female
  Weight: 70 kg

DRUGS (3)
  1. DUODOPA [Suspect]
     Active Substance: CARBIDOPA\LEVODOPA
     Indication: PRODUCT USED FOR UNKNOWN INDICATION
     Dosage: 4.2 ML/H: CONTINOUS
     Route: 050
     Dates: start: 20130625
  2. DUODOPA [Suspect]
     Active Substance: CARBIDOPA\LEVODOPA
     Route: 065
     Dates: start: 20140904, end: 20150125
  3. DUODOPA [Suspect]
     Active Substance: CARBIDOPA\LEVODOPA
     Route: 065
     Dates: start: 20150527

REACTIONS (9)
  - Paraesthesia [Recovered/Resolved]
  - Pain [Unknown]
  - Body temperature abnormal [Unknown]
  - Gait disturbance [Unknown]
  - Therapy change [Unknown]
  - Peripheral sensory neuropathy [Not Recovered/Not Resolved]
  - Coordination abnormal [Unknown]
  - Paraesthesia [Not Recovered/Not Resolved]
  - Reflexes abnormal [Unknown]

NARRATIVE: CASE EVENT DATE: 20140313
